FAERS Safety Report 7099315-0 (Version None)
Quarter: 2010Q4

REPORT INFORMATION
  Report Type: 
  Country: None (occurrence: None)
  Receive Date: 20101112
  Receipt Date: 20080620
  Transmission Date: 20110411
  Serious: No
  Sender: FDA-Public Use
  Company Number: US-KINGPHARMUSA00001-K200800735

PATIENT
  Sex: Female
  Weight: 66.667 kg

DRUGS (6)
  1. LEVOXYL [Suspect]
     Indication: AUTOIMMUNE THYROIDITIS
     Dosage: 137 MCG, QD
     Route: 048
     Dates: start: 20061223, end: 20071201
  2. LEVOXYL [Suspect]
     Dosage: 150 MCG, QD
     Route: 048
     Dates: start: 20071201, end: 20080620
  3. LEVOXYL [Suspect]
     Dosage: 137 MCG, QD
     Route: 048
     Dates: start: 20080620
  4. VITAMINS [Concomitant]
  5. VITAMIN B-12 [Concomitant]
  6. CLONAZEPAM [Concomitant]
     Indication: HEADACHE
     Dosage: UNK, UNK

REACTIONS (2)
  - THYROID FUNCTION TEST ABNORMAL [None]
  - WEIGHT DECREASED [None]
